FAERS Safety Report 23028161 (Version 1)
Quarter: 2023Q4

REPORT INFORMATION
  Report Type: Spontaneous
  Country: US (occurrence: US)
  Receive Date: 20231004
  Receipt Date: 20231004
  Transmission Date: 20240110
  Serious: Yes (Life-Threatening, Hospitalization, Other)
  Sender: FDA-Public Use
  Company Number: US-LUPIN HEALTHCARE (UK) LIMITED-2023-08241

PATIENT

DRUGS (1)
  1. DIVALPROEX SODIUM [Suspect]
     Active Substance: DIVALPROEX SODIUM
     Indication: Product used for unknown indication
     Dosage: UNK (ADMINISTERED 200 TABLETS)
     Route: 048

REACTIONS (8)
  - Hyperammonaemia [Recovering/Resolving]
  - Suicide attempt [Recovering/Resolving]
  - Bradypnoea [Unknown]
  - Hypotension [Unknown]
  - Unresponsive to stimuli [Unknown]
  - Hypothermia [Unknown]
  - Drug level increased [Unknown]
  - Intentional overdose [Unknown]
